FAERS Safety Report 24638113 (Version 1)
Quarter: 2024Q4

REPORT INFORMATION
  Report Type: Spontaneous
  Country: US (occurrence: None)
  Receive Date: 20241115
  Receipt Date: 20241115
  Transmission Date: 20250115
  Serious: No
  Sender: Public
  Company Number: None

PATIENT
  Age: 25 Month
  Sex: Male
  Weight: 14.4 kg

DRUGS (1)
  1. DIETARY SUPPLEMENT\HERBALS [Suspect]
     Active Substance: DIETARY SUPPLEMENT\HERBALS
     Indication: Product used for unknown indication
     Dates: start: 20241114, end: 20241114

REACTIONS (2)
  - Product administered from unauthorised provider [None]
  - Abdominal discomfort [None]

NARRATIVE: CASE EVENT DATE: 20241114
